FAERS Safety Report 19668601 (Version 1)
Quarter: 2021Q3

REPORT INFORMATION
  Report Type: Spontaneous
  Country: US (occurrence: US)
  Receive Date: 20210806
  Receipt Date: 20210806
  Transmission Date: 20211014
  Serious: Yes (Congenital Anomaly)
  Sender: FDA-Public Use
  Company Number: US-PFIZER INC-6739

PATIENT
  Sex: Male
  Weight: 1.6 kg

DRUGS (5)
  1. METHOTREXATE SODIUM. [Suspect]
     Active Substance: METHOTREXATE SODIUM
     Indication: ABORTION INDUCED
     Dosage: 50 MG/M2, FREQ: ONCE
     Route: 064
  2. METHOTREXATE SODIUM. [Suspect]
     Active Substance: METHOTREXATE SODIUM
     Dosage: 50 MG/M2, CYCLIC
     Route: 064
     Dates: start: 201305
  3. METHYLDOPA. [Concomitant]
     Active Substance: METHYLDOPA
     Route: 065
  4. MISOPROSTOL. [Suspect]
     Active Substance: MISOPROSTOL
     Dosage: 800 UG, CYCLIC
     Route: 064
  5. MISOPROSTOL. [Suspect]
     Active Substance: MISOPROSTOL
     Indication: ABORTION INDUCED
     Dosage: 800 UG, FREQ: ONCE
     Route: 064

REACTIONS (19)
  - Foetal growth restriction [Not Recovered/Not Resolved]
  - Congenital nose malformation [Not Recovered/Not Resolved]
  - Brachydactyly [Not Recovered/Not Resolved]
  - Oligohydramnios [Not Recovered/Not Resolved]
  - Pectus excavatum [Not Recovered/Not Resolved]
  - Congenital genital malformation male [Not Recovered/Not Resolved]
  - Abnormal palmar/plantar creases [Not Recovered/Not Resolved]
  - Adactyly [Not Recovered/Not Resolved]
  - Hypospadias [Not Recovered/Not Resolved]
  - Syndactyly [Not Recovered/Not Resolved]
  - Low set ears [Not Recovered/Not Resolved]
  - Haemangioma [Not Recovered/Not Resolved]
  - Congenital eye disorder [Not Recovered/Not Resolved]
  - Psychomotor skills impaired [Not Recovered/Not Resolved]
  - Brachycephaly [Not Recovered/Not Resolved]
  - Maternal exposure during pregnancy [Unknown]
  - Congenital nail disorder [Not Recovered/Not Resolved]
  - Delayed fontanelle closure [Not Recovered/Not Resolved]
  - Congenital facial nerve hypoplasia [Not Recovered/Not Resolved]
